FAERS Safety Report 8826094 (Version 1)
Quarter: 2012Q4

REPORT INFORMATION
  Report Type: 
  Country: RU (occurrence: RU)
  Receive Date: 20121005
  Receipt Date: 20121005
  Transmission Date: 20130627
  Serious: Yes (Other)
  Sender: FDA-Public Use
  Company Number: PHHY2012RU087211

PATIENT
  Age: 60 Year
  Sex: Female

DRUGS (1)
  1. MIACALCIC [Suspect]
     Route: 045

REACTIONS (1)
  - Adrenal disorder [Unknown]
